FAERS Safety Report 16464779 (Version 11)
Quarter: 2021Q4

REPORT INFORMATION
  Report Type: Report from Study
  Country: NL (occurrence: NL)
  Receive Date: 20190621
  Receipt Date: 20211115
  Transmission Date: 20220303
  Serious: Yes (Hospitalization, Other)
  Sender: FDA-Public Use
  Company Number: NL-ABBVIE-19S-114-2654658-00

PATIENT
  Sex: Female
  Weight: 46 kg

DRUGS (10)
  1. CARBIDOPA\LEVODOPA [Suspect]
     Active Substance: CARBIDOPA\LEVODOPA
     Indication: Parkinson^s disease
     Dosage: MD:11.8 CD: 5.0 ED 3.0
     Route: 050
     Dates: start: 20190128, end: 2019
  2. CARBIDOPA\LEVODOPA [Suspect]
     Active Substance: CARBIDOPA\LEVODOPA
     Dosage: MD: 11.8, CD: 4.8, ED: 3.0,?CD WAS REDUCED BY 0.2 TO 4.8 ML/HOUR.
     Route: 050
     Dates: start: 2019, end: 2019
  3. CARBIDOPA\LEVODOPA [Suspect]
     Active Substance: CARBIDOPA\LEVODOPA
     Dosage: MD: 12.5ML, CD: 5.0ML/H, ED: 3.0ML?REMAINS 16 HOURS
     Route: 050
     Dates: end: 2020
  4. CARBIDOPA\LEVODOPA [Suspect]
     Active Substance: CARBIDOPA\LEVODOPA
     Dosage: MD: 12.5ML, CD: 5.2ML/H, ED: 3.0ML?REMAINS AT 16 HOURS
     Route: 050
     Dates: start: 2020, end: 2020
  5. CARBIDOPA\LEVODOPA [Suspect]
     Active Substance: CARBIDOPA\LEVODOPA
     Dosage: MD: 12.5ML, CD: 5.4ML/H, ED: 3.0ML?REMAINS AT 16 HOURS
     Route: 050
     Dates: start: 2020
  6. POLYETHYLENE GLYCOLS [Concomitant]
     Active Substance: POLYETHYLENE GLYCOLS
     Indication: Abnormal faeces
     Dosage: 0.5 SACHET
  7. MOVICOLON [Concomitant]
     Active Substance: POLYETHYLENE GLYCOL 3350\POTASSIUM CHLORIDE\SODIUM BICARBONATE\SODIUM CHLORIDE
     Indication: Abnormal faeces
  8. IRON SUPLLEMENTATION [Concomitant]
     Indication: Product used for unknown indication
  9. SYMMETREL [Concomitant]
     Active Substance: AMANTADINE HYDROCHLORIDE
     Indication: Parkinson^s disease
  10. CARBIDOPA\LEVODOPA [Concomitant]
     Active Substance: CARBIDOPA\LEVODOPA
     Indication: Parkinson^s disease
     Route: 048

REACTIONS (32)
  - Internal injury [Recovered/Resolved]
  - Stoma site haemorrhage [Recovered/Resolved]
  - Memory impairment [Not Recovered/Not Resolved]
  - Learning disorder [Not Recovered/Not Resolved]
  - Abnormal faeces [Recovered/Resolved]
  - Muscle rigidity [Not Recovered/Not Resolved]
  - Weight decreased [Recovered/Resolved]
  - Abnormal dreams [Not Recovered/Not Resolved]
  - Somnolence [Recovered/Resolved]
  - Bradykinesia [Recovered/Resolved]
  - Fatigue [Recovered/Resolved]
  - On and off phenomenon [Not Recovered/Not Resolved]
  - Dyskinesia [Not Recovered/Not Resolved]
  - Hallucination, auditory [Recovered/Resolved]
  - Stoma site discharge [Recovered/Resolved]
  - Stoma site pain [Recovered/Resolved]
  - Therapeutic product effect delayed [Recovered/Resolved]
  - Therapeutic product effect incomplete [Recovering/Resolving]
  - Hallucination, auditory [Recovered/Resolved]
  - Stoma site erythema [Recovering/Resolving]
  - Unevaluable event [Recovered/Resolved]
  - Loss of personal independence in daily activities [Recovered/Resolved]
  - Malaise [Not Recovered/Not Resolved]
  - Tension [Not Recovered/Not Resolved]
  - Weight abnormal [Not Recovered/Not Resolved]
  - Stoma site discharge [Recovered/Resolved]
  - Dyskinesia [Not Recovered/Not Resolved]
  - Dizziness [Recovered/Resolved]
  - Fall [Recovering/Resolving]
  - Aphasia [Not Recovered/Not Resolved]
  - Urinary incontinence [Not Recovered/Not Resolved]
  - Cognitive disorder [Not Recovered/Not Resolved]

NARRATIVE: CASE EVENT DATE: 20190101
